FAERS Safety Report 7270991-2 (Version None)
Quarter: 2011Q1

REPORT INFORMATION
  Report Type: 
  Country: None (occurrence: None)
  Receive Date: 20110202
  Receipt Date: 20110124
  Transmission Date: 20110831
  Serious: Yes (Hospitalization)
  Sender: FDA-Public Use
  Company Number: FR-ASTRAZENECA-2011SE04202

PATIENT
  Age: 26336 Day
  Sex: Female

DRUGS (6)
  1. RIVOTRIL [Concomitant]
     Route: 048
  2. TEMERIT [Suspect]
     Route: 048
     Dates: end: 20101208
  3. RIVOTRIL [Concomitant]
     Route: 002
  4. MOPRAL [Suspect]
     Route: 048
  5. COTRIATEC [Suspect]
     Route: 048
  6. ACETAMINOPHEN AND TRAMADOL HCL [Suspect]
     Route: 048
     Dates: end: 20101208

REACTIONS (2)
  - BRADYCARDIA [None]
  - POISONING DELIBERATE [None]
